FAERS Safety Report 4733463-2 (Version None)
Quarter: 2005Q3

REPORT INFORMATION
  Report Type: 
  Country: None (occurrence: None)
  Receive Date: 20050801
  Receipt Date: 20050718
  Transmission Date: 20060218
  Serious: Yes (Death, Hospitalization)
  Sender: FDA-Public Use
  Company Number: HQWYE256819JUL05

PATIENT
  Age: 80 Year
  Sex: Male

DRUGS (4)
  1. ANCARON                    (AMIODARONE, TABLET) [Suspect]
     Indication: ATRIAL FIBRILLATION
     Dosage: 100 MG 2X PER 1 DAY, ORAL
     Route: 048
     Dates: start: 20041028, end: 20050607
  2. WARFARIN [Concomitant]
  3. MICARDIS  (TELEMASARTAN) [Concomitant]
  4. AMLODIPINE BESYLATE [Concomitant]

REACTIONS (4)
  - DEHYDRATION [None]
  - FIBROSIS [None]
  - INTERSTITIAL LUNG DISEASE [None]
  - PLEURAL ADHESION [None]
